FAERS Safety Report 25534485 (Version 1)
Quarter: 2025Q3

REPORT INFORMATION
  Report Type: Spontaneous
  Country: EU (occurrence: EU)
  Receive Date: 20250709
  Receipt Date: 20250709
  Transmission Date: 20251021
  Serious: Yes (Hospitalization, Other)
  Sender: B. BRAUN MEDICAL INC.
  Company Number: None

PATIENT
  Age: 61 Year
  Sex: Female

DRUGS (4)
  1. ACETAMINOPHEN [Suspect]
     Active Substance: ACETAMINOPHEN
  2. ZOPICLONE [Suspect]
     Active Substance: ZOPICLONE
  3. BUPROPION [Suspect]
     Active Substance: BUPROPION
  4. FELODIPINE [Suspect]
     Active Substance: FELODIPINE

REACTIONS (4)
  - Suicidal ideation [Recovered/Resolved]
  - Depressed level of consciousness [Recovered/Resolved]
  - Toxicity to various agents [Recovered/Resolved]
  - Intentional overdose [Unknown]

NARRATIVE: CASE EVENT DATE: 20230731
